FAERS Safety Report 15826246 (Version 1)
Quarter: 2019Q1

REPORT INFORMATION
  Report Type: Spontaneous
  Country: US (occurrence: US)
  Receive Date: 20190115
  Receipt Date: 20190115
  Transmission Date: 20190417
  Serious: Yes (Hospitalization, Other)
  Sender: FDA-Public Use
  Company Number: US-PFIZER INC-001-0096-970024

PATIENT
  Age: 59 Year
  Sex: Female

DRUGS (1)
  1. THROMBIN [Suspect]
     Active Substance: THROMBIN
     Indication: POST PROCEDURAL HAEMORRHAGE
     Route: 061
     Dates: start: 19900223, end: 19900223

REACTIONS (8)
  - Activated partial thromboplastin time prolonged [Recovered/Resolved]
  - Blood creatinine increased [Recovered/Resolved]
  - Laboratory test abnormal [Recovered/Resolved]
  - Respiratory tract haemorrhage [Recovered/Resolved]
  - Liver disorder [Recovered/Resolved]
  - Sepsis [Recovered/Resolved]
  - Factor V deficiency [Recovered/Resolved]
  - Coagulopathy [Recovered/Resolved]
